FAERS Safety Report 21936309 (Version 1)
Quarter: 2023Q1

REPORT INFORMATION
  Report Type: Spontaneous
  Country: JP (occurrence: JP)
  Receive Date: 20230201
  Receipt Date: 20230201
  Transmission Date: 20230417
  Serious: Yes (Hospitalization, Other)
  Sender: FDA-Public Use
  Company Number: JP-MLMSERVICE-20230119-4048454-1

PATIENT
  Age: 84 Year
  Sex: Female

DRUGS (8)
  1. ACETAMINOPHEN [Suspect]
     Active Substance: ACETAMINOPHEN
     Indication: Back pain
     Route: 048
  2. ACETAMINOPHEN [Suspect]
     Active Substance: ACETAMINOPHEN
     Indication: Osteoporosis
  3. LOXOPROFEN [Concomitant]
     Active Substance: LOXOPROFEN
     Indication: Back pain
     Route: 065
  4. LOXOPROFEN [Concomitant]
     Active Substance: LOXOPROFEN
     Indication: Osteoporosis
  5. TIARAMIDE [Concomitant]
     Active Substance: TIARAMIDE
     Indication: Back pain
     Route: 065
  6. TIARAMIDE [Concomitant]
     Active Substance: TIARAMIDE
     Indication: Osteoporosis
  7. ELDECALCITOL [Concomitant]
     Active Substance: ELDECALCITOL
     Indication: Osteoporosis
     Route: 065
  8. ELDECALCITOL [Concomitant]
     Active Substance: ELDECALCITOL
     Indication: Back pain

REACTIONS (3)
  - Nephritis allergic [Recovered/Resolved]
  - Tubulointerstitial nephritis [Recovered/Resolved]
  - Acute kidney injury [Recovered/Resolved]
